FAERS Safety Report 6982551-9 (Version None)
Quarter: 2010Q3

REPORT INFORMATION
  Report Type: 
  Country: None (occurrence: None)
  Receive Date: 20100914
  Receipt Date: 20100226
  Transmission Date: 20110219
  Serious: Yes (Other)
  Sender: FDA-Public Use
  Company Number: US-PFIZER INC-2010025824

PATIENT
  Sex: Female
  Weight: 95.238 kg

DRUGS (8)
  1. LYRICA [Suspect]
     Indication: FIBROMYALGIA
     Dosage: 100 MG, 3X/DAY
     Route: 048
     Dates: start: 20091201, end: 20100221
  2. BENICAR [Concomitant]
     Indication: HYPERTENSION
  3. VICODIN [Concomitant]
     Indication: PAIN
  4. TOPROL-XL [Concomitant]
  5. CLONIDINE [Concomitant]
  6. ANASTROZOLE [Concomitant]
  7. LANTUS [Concomitant]
  8. VYTORIN [Concomitant]

REACTIONS (3)
  - AGITATION [None]
  - ANXIETY [None]
  - MALAISE [None]
